FAERS Safety Report 5481096-5 (Version None)
Quarter: 2007Q4

REPORT INFORMATION
  Report Type: 
  Country: None (occurrence: None)
  Receive Date: 20071003
  Receipt Date: 20070924
  Transmission Date: 20080405
  Serious: Yes (Disabling)
  Sender: FDA-Public Use
  Company Number: 6031097

PATIENT
  Age: 56 Year
  Sex: Male

DRUGS (6)
  1. BISOPROLOL FUMARATE [Suspect]
     Indication: ISCHAEMIC CARDIOMYOPATHY
     Dosage: 1.25 MG (1.25 MG, 1 D) ORAL
     Route: 048
     Dates: start: 20070214, end: 20070218
  2. IKOREL (TABLET) (NICORANDIL) [Concomitant]
  3. CORVASAL (2 MG, TABLET) (PERINDOPRIL) [Concomitant]
  4. ASPEGIC 1000 [Concomitant]
  5. PRAVASTATIN SODIUM [Concomitant]
  6. OGAST (GASTRO-RESISTANT GRANULES) (LANSOPRAZOLE) [Concomitant]

REACTIONS (3)
  - ABASIA [None]
  - MONOPLEGIA [None]
  - PAIN IN EXTREMITY [None]
